FAERS Safety Report 5220896-3 (Version None)
Quarter: 2007Q1

REPORT INFORMATION
  Report Type: 
  Country: None (occurrence: None)
  Receive Date: 20070126
  Receipt Date: 20070119
  Transmission Date: 20070707
  Serious: Yes (Hospitalization)
  Sender: FDA-Public Use
  Company Number: FR-GLAXOSMITHKLINE-B0454953A

PATIENT
  Age: 32 Year
  Sex: Male

DRUGS (9)
  1. COMBIVIR [Suspect]
     Indication: HIV INFECTION
     Route: 048
     Dates: start: 20061215, end: 20061228
  2. KIVEXA [Suspect]
     Indication: HIV INFECTION
     Route: 048
     Dates: start: 20061204, end: 20061206
  3. VIDEX [Suspect]
     Indication: HIV INFECTION
     Route: 048
     Dates: start: 20061130, end: 20061206
  4. TRUVADA [Suspect]
     Indication: HIV INFECTION
     Route: 048
     Dates: start: 20061130, end: 20061204
  5. BACTRIM [Suspect]
     Route: 065
     Dates: start: 20061124, end: 20061204
  6. WELLVONE [Suspect]
     Indication: PNEUMOCYSTIS JIROVECI PNEUMONIA
     Route: 065
     Dates: start: 20061204
  7. KALETRA [Concomitant]
     Indication: HIV INFECTION
     Route: 065
     Dates: start: 20061124, end: 20061206
  8. INVIRASE [Concomitant]
     Indication: HIV INFECTION
     Route: 065
     Dates: start: 20061212
  9. NORVIR [Concomitant]
     Indication: HIV INFECTION
     Route: 065
     Dates: start: 20061212, end: 20061228

REACTIONS (8)
  - ALANINE AMINOTRANSFERASE INCREASED [None]
  - ASPARTATE AMINOTRANSFERASE DECREASED [None]
  - BLOOD ALKALINE PHOSPHATASE INCREASED [None]
  - HEADACHE [None]
  - HYPERSENSITIVITY [None]
  - PYREXIA [None]
  - TRANSAMINASES INCREASED [None]
  - VOMITING [None]
